FAERS Safety Report 10980073 (Version 7)
Quarter: 2016Q1

REPORT INFORMATION
  Report Type: Report from Study
  Country: BE (occurrence: BE)
  Receive Date: 20150402
  Receipt Date: 20160112
  Transmission Date: 20160525
  Serious: Yes (Hospitalization)
  Sender: FDA-Public Use
  Company Number: BE-ABBVIE-15P-013-1368097-00

PATIENT
  Sex: Female

DRUGS (7)
  1. DUODOPA [Suspect]
     Active Substance: CARBIDOPA\LEVODOPA
     Indication: PARKINSON^S DISEASE
     Route: 050
     Dates: start: 20130311, end: 20130315
  2. DUODOPA [Suspect]
     Active Substance: CARBIDOPA\LEVODOPA
     Dosage: AM=2ML; CD=1.8ML/HR DURING 16HRS; ED=1ML
     Route: 050
     Dates: start: 20160105
  3. DUODOPA [Suspect]
     Active Substance: CARBIDOPA\LEVODOPA
     Dosage: AM=2ML-CD=2.1ML-ED=1ML
     Route: 050
     Dates: start: 20150416, end: 20150701
  4. DUODOPA [Suspect]
     Active Substance: CARBIDOPA\LEVODOPA
     Dosage: AM DOSE=2ML, CD=2ML.H FOR 16HRS AND ED=1ML
     Route: 050
     Dates: start: 20150129, end: 20150416
  5. DUODOPA [Suspect]
     Active Substance: CARBIDOPA\LEVODOPA
     Dosage: AM DOSE=1.4ML, CD=1.2ML/H FOR 16HRS AND ED=0.4ML
     Route: 050
     Dates: start: 20130315, end: 20130317
  6. DUODOPA [Suspect]
     Active Substance: CARBIDOPA\LEVODOPA
     Dosage: AM=2ML; CD=2ML/HR DURING 16HRS ; ED=1ML
     Route: 050
     Dates: start: 20150701, end: 20160105
  7. DUODOPA [Suspect]
     Active Substance: CARBIDOPA\LEVODOPA
     Dosage: DOSAGE CONTINUOUSLY MONITORED AND ADJUSTED
     Route: 050
     Dates: start: 20130317, end: 20150129

REACTIONS (11)
  - Freezing phenomenon [Unknown]
  - Stoma site discharge [Unknown]
  - Fall [Unknown]
  - Stoma site hypergranulation [Not Recovered/Not Resolved]
  - Purulent discharge [Unknown]
  - Drug therapy enhancement [Unknown]
  - Dyskinesia [Unknown]
  - Stoma site hypergranulation [Recovered/Resolved]
  - Femoral neck fracture [Unknown]
  - Gait disturbance [Unknown]
  - Arthralgia [Unknown]
